FAERS Safety Report 5578216-0 (Version None)
Quarter: 2007Q4

REPORT INFORMATION
  Report Type: 
  Country: None (occurrence: None)
  Receive Date: 20071227
  Receipt Date: 20071212
  Transmission Date: 20080405
  Serious: Yes (Death, Hospitalization)
  Sender: FDA-Public Use
  Company Number: 2007SP023878

PATIENT
  Age: 41 Year
  Sex: Male
  Weight: 81.7 kg

DRUGS (2)
  1. PEGINTERFERON ALFA-2B (S-P) (PEGINTERFERON ALFA-2B) [Suspect]
     Indication: HEPATITIS C
     Dosage: 1.5 MCG/KG;QW;
     Dates: start: 20070109, end: 20070613
  2. RIBAVIRIN [Suspect]
     Indication: HEPATITIS C
     Dosage: 11 MG/KG; QD; PO
     Route: 048
     Dates: start: 20070109, end: 20070613

REACTIONS (3)
  - IDIOPATHIC PULMONARY FIBROSIS [None]
  - LUNG INFECTION [None]
  - RESPIRATORY FAILURE [None]
